FAERS Safety Report 8602108-3 (Version None)
Quarter: 2012Q3

REPORT INFORMATION
  Report Type: 
  Country: None (occurrence: None)
  Receive Date: 20120817
  Receipt Date: 20120813
  Transmission Date: 20120928
  Serious: No
  Sender: FDA-Public Use
  Company Number: US-PFIZER INC-2012197888

PATIENT
  Age: 16 Month
  Sex: Male
  Weight: 27.664 kg

DRUGS (7)
  1. ALBUTEROL [Concomitant]
     Indication: ASTHMA
     Dosage: UNK, AS NEEDED
  2. HYDROXYZINE [Concomitant]
     Dosage: UNK
  3. PHENOBARBITAL TAB [Concomitant]
     Indication: EPILEPSY
     Dosage: UNK
  4. LOTEMAX [Concomitant]
     Dosage: UNK
  5. DIASTAT [Concomitant]
     Indication: CONVULSION
     Dosage: UNK, AS NEEDED
  6. CLINDAMYCIN PALMITATE HYDROCHLORIDE [Suspect]
     Indication: PNEUMONIA ASPIRATION
     Dosage: UNK, 3X/DAY
     Route: 048
     Dates: start: 20120808
  7. TIZANIDINE [Concomitant]
     Dosage: UNK

REACTIONS (1)
  - THERAPEUTIC RESPONSE UNEXPECTED [None]
